FAERS Safety Report 13890996 (Version 3)
Quarter: 2017Q4

REPORT INFORMATION
  Report Type: Spontaneous
  Country: BR (occurrence: BR)
  Receive Date: 20170822
  Receipt Date: 20171006
  Transmission Date: 20180320
  Serious: Yes (Hospitalization, Other)
  Sender: FDA-Public Use
  Company Number: BR-ABBVIE-17P-020-2025774-00

PATIENT
  Age: 87 Year
  Sex: Female
  Weight: 50 kg

DRUGS (5)
  1. DEPAKOTE ER [Suspect]
     Active Substance: DIVALPROEX SODIUM
     Route: 050
  2. CLOPIDOGREL [Concomitant]
     Active Substance: CLOPIDOGREL BISULFATE
     Indication: CARDIOVASCULAR DISORDER
     Route: 050
  3. DEPAKOTE ER [Suspect]
     Active Substance: DIVALPROEX SODIUM
     Dosage: FORM STRENGTH: 500 MG
     Route: 050
     Dates: start: 2009
  4. DEPAKOTE ER [Suspect]
     Active Substance: DIVALPROEX SODIUM
     Indication: SEIZURE
     Dosage: FORM STRENGTH: 500 MG, FREQUENCY: IN THE MORNING
     Route: 050
  5. LOSARTAN. [Concomitant]
     Active Substance: LOSARTAN
     Indication: BLOOD PRESSURE MANAGEMENT
     Dosage: DAILY DOSE: ^HALF^
     Route: 065

REACTIONS (12)
  - Seizure [Recovered/Resolved]
  - Tremor [Recovered/Resolved]
  - Dysphagia [Not Recovered/Not Resolved]
  - Urinary tract infection [Recovered/Resolved]
  - Off label use [Unknown]
  - Drooling [Not Recovered/Not Resolved]
  - Product quality issue [Unknown]
  - Pneumonia [Recovered/Resolved]
  - Drug ineffective [Unknown]
  - Aspiration [Recovered/Resolved]
  - Eye movement disorder [Recovered/Resolved]
  - Incorrect route of drug administration [Unknown]

NARRATIVE: CASE EVENT DATE: 201706
